FAERS Safety Report 9270544 (Version 2)
Quarter: 2013Q2

REPORT INFORMATION
  Report Type: Spontaneous
  Country: CA (occurrence: CA)
  Receive Date: 20130503
  Receipt Date: 20130517
  Transmission Date: 20140414
  Serious: Yes (Hospitalization)
  Sender: FDA-Public Use
  Company Number: CA-B.I. PHARMACEUTICALS,INC./RIDGEFIELD-2013-BI-12606BP

PATIENT
  Age: 36 Year
  Sex: Female

DRUGS (1)
  1. MIRAPEX [Suspect]
     Indication: RESTLESS LEGS SYNDROME
     Dates: start: 2002

REACTIONS (6)
  - Depression [Unknown]
  - Pathological gambling [Not Recovered/Not Resolved]
  - Compulsive shopping [Unknown]
  - Alcohol abuse [Unknown]
  - Dysarthria [Unknown]
  - Dizziness [Unknown]
